FAERS Safety Report 9989590 (Version 1)
Quarter: 2014Q1

REPORT INFORMATION
  Report Type: Report from Study
  Country: US (occurrence: US)
  Receive Date: 20140310
  Receipt Date: 20140310
  Transmission Date: 20141002
  Serious: No
  Sender: FDA-Public Use
  Company Number: US-ABBVIE-13P-163-1135874-00

PATIENT
  Sex: Male

DRUGS (11)
  1. HUMIRA [Suspect]
     Indication: CROHN^S DISEASE
     Dates: start: 201206, end: 20130724
  2. VERELAN [Concomitant]
     Indication: VENTRICULAR EXTRASYSTOLES
  3. MESALAMINE [Concomitant]
     Indication: CROHN^S DISEASE
     Dosage: USUALLY ONCE AT NIGHT
  4. CANASA [Concomitant]
     Indication: CROHN^S DISEASE
     Dosage: AT NIGHT
  5. SULFASALAZINE [Concomitant]
     Indication: CROHN^S DISEASE
     Dosage: 2 PILLS IN THE AM AND 2 IN THE PM
  6. SLO MAGNESIUM [Concomitant]
     Indication: CARDIAC DISORDER
  7. POTASSIUM [Concomitant]
     Indication: CARDIAC DISORDER
     Dosage: 20 MEG 1/2 IN AM 1/2 IN PM
  8. ASPIRIN [Concomitant]
     Indication: CARDIAC DISORDER
  9. XOPENEX [Concomitant]
     Indication: ASTHMA
  10. PRO AIR INHALER [Concomitant]
     Indication: INHALATION THERAPY
  11. SPIRIVA [Concomitant]
     Indication: PRODUCT USED FOR UNKNOWN INDICATION
     Dates: start: 201305

REACTIONS (1)
  - Psoriasis [Recovering/Resolving]
